FAERS Safety Report 21493106 (Version 1)
Quarter: 2022Q4

REPORT INFORMATION
  Report Type: Spontaneous
  Country: US (occurrence: None)
  Receive Date: 20221021
  Receipt Date: 20221021
  Transmission Date: 20230112
  Serious: Yes (Hospitalization, Other)
  Sender: FDA-Public Use
  Company Number: None

PATIENT
  Age: 42 Year
  Sex: Female
  Weight: 99.34 kg

DRUGS (13)
  1. PARAGARD T 380A [Suspect]
     Active Substance: COPPER
     Dates: start: 20120817, end: 20210913
  2. AMLODIPINE [Concomitant]
     Active Substance: AMLODIPINE BESYLATE
  3. OZEMPIC [Concomitant]
     Active Substance: SEMAGLUTIDE
  4. ESTRADIOL [Concomitant]
     Active Substance: ESTRADIOL
  5. ARTIFICIAL LENS IMPLANT [Concomitant]
  6. EYE VITAMIN [Concomitant]
  7. VITAMIN D3 [Concomitant]
     Active Substance: CHOLECALCIFEROL
  8. BLACK COHOSH [Concomitant]
     Active Substance: BLACK COHOSH
  9. HERBALS\TURMERIC [Concomitant]
     Active Substance: HERBALS\TURMERIC
  10. VITAMIN C [Concomitant]
     Active Substance: ASCORBIC ACID
  11. TYLENOL [Concomitant]
     Active Substance: ACETAMINOPHEN
  12. ZYRTEC [Concomitant]
     Active Substance: CETIRIZINE HYDROCHLORIDE
  13. VITAMIN A [Concomitant]
     Active Substance: VITAMIN A

REACTIONS (5)
  - Ovarian cyst [None]
  - Abdominal pain upper [None]
  - Complication associated with device [None]
  - Hysterectomy [None]
  - Medical device site infection [None]

NARRATIVE: CASE EVENT DATE: 20210827
